FAERS Safety Report 4317798-3 (Version None)
Quarter: 2004Q1

REPORT INFORMATION
  Report Type: 
  Country: None (occurrence: None)
  Receive Date: 20040316
  Receipt Date: 20040305
  Transmission Date: 20041129
  Serious: Yes (Hospitalization)
  Sender: FDA-Public Use
  Company Number: PHNU2004DE01117

PATIENT
  Sex: Female
  Weight: 73 kg

DRUGS (7)
  1. DIOVAN [Suspect]
     Indication: HYPERTENSION
     Dosage: 1 DF, QD
     Route: 048
     Dates: start: 19990101
  2. CORDANUM [Concomitant]
     Indication: HYPERTENSION
     Dosage: 1 DF, QD
     Route: 048
     Dates: start: 19990101
  3. INDOMETHACIN [Interacting]
     Indication: BACK PAIN
     Route: 054
     Dates: end: 20031029
  4. MCP ^CT-ARZNEIMITTEL^ [Concomitant]
     Indication: NAUSEA
     Dosage: 1 DF, TID
     Route: 048
  5. PANTOZOL [Concomitant]
     Indication: PROPHYLAXIS AGAINST GASTROINTESTINAL ULCER
     Dosage: 40 MG, BID
     Route: 048
  6. TRAMADOL HCL [Concomitant]
     Indication: BACK PAIN
     Dosage: 100 MG, QD
     Route: 054
     Dates: end: 20031029
  7. TRINITON [Concomitant]
     Indication: HYPERTENSION
     Dosage: 1 DF, QD
     Route: 048
     Dates: start: 19990101, end: 20031029

REACTIONS (10)
  - ANOREXIA [None]
  - ASTHENIA [None]
  - DRUG INTERACTION [None]
  - ELECTROLYTE IMBALANCE [None]
  - GASTRIC ULCER [None]
  - GENERAL PHYSICAL HEALTH DETERIORATION [None]
  - HYPERTENSION [None]
  - HYPOKALAEMIA [None]
  - HYPONATRAEMIA [None]
  - REFLUX OESOPHAGITIS [None]
